FAERS Safety Report 25804128 (Version 1)
Quarter: 2025Q3

REPORT INFORMATION
  Report Type: Spontaneous
  Country: US (occurrence: None)
  Receive Date: 20250915
  Receipt Date: 20250915
  Transmission Date: 20251020
  Serious: No
  Sender: FDA-CTU
  Company Number: None

PATIENT
  Age: 68 Year
  Sex: Female
  Weight: 74.25 kg

DRUGS (6)
  1. ATORVASTATIN [Suspect]
     Active Substance: ATORVASTATIN
     Indication: Blood cholesterol increased
     Dosage: OTHER QUANTITY : 30 TABLET(S);?FREQUENCY : DAILY;?
     Route: 048
     Dates: start: 20250828, end: 20250913
  2. FOSAMAX [Concomitant]
     Active Substance: ALENDRONATE SODIUM
  3. LOSARTAN [Concomitant]
     Active Substance: LOSARTAN
  4. MIRABEGRON [Concomitant]
     Active Substance: MIRABEGRON
  5. CALCIUM [Concomitant]
     Active Substance: CALCIUM
  6. VITAMIN D [Concomitant]
     Active Substance: VITAMIN D NOS

REACTIONS (4)
  - Myalgia [None]
  - Rash [None]
  - Pruritus [None]
  - Paraesthesia [None]
